FAERS Safety Report 6253357-3 (Version None)
Quarter: 2009Q3

REPORT INFORMATION
  Report Type: 
  Country: None (occurrence: None)
  Receive Date: 20090701
  Receipt Date: 20090618
  Transmission Date: 20100115
  Serious: Yes (Hospitalization, Other)
  Sender: FDA-Public Use
  Company Number: PHMT2007CA00470

PATIENT
  Sex: Female

DRUGS (13)
  1. SANDOSTATIN LAR [Suspect]
     Indication: ENTERITIS
     Dosage: 40 MG, QMO
     Route: 030
     Dates: start: 20061227, end: 20090611
  2. APO-FOLIC [Concomitant]
  3. ASAPHEN [Concomitant]
  4. ATIVAN [Concomitant]
  5. BISOPROLOL [Concomitant]
  6. DETROL [Concomitant]
  7. FERROUS SULFATE TAB [Concomitant]
  8. NITRODUR II [Concomitant]
  9. PANTOPRAZOLE SODIUM [Concomitant]
  10. PLAVIX [Concomitant]
  11. SODIUM BICARBONATE [Concomitant]
  12. TEMAZEPAM [Concomitant]
  13. VITAMIN B-12 [Concomitant]

REACTIONS (15)
  - ANAEMIA [None]
  - ASTHENIA [None]
  - BLOOD CREATININE INCREASED [None]
  - BLOOD POTASSIUM INCREASED [None]
  - CARDIAC DISORDER [None]
  - DEHYDRATION [None]
  - DIARRHOEA [None]
  - ENTERITIS [None]
  - FATIGUE [None]
  - INJECTION SITE PAIN [None]
  - PANCREATITIS [None]
  - RENAL DISORDER [None]
  - RENAL FAILURE ACUTE [None]
  - SURGERY [None]
  - VOMITING [None]
